FAERS Safety Report 8830519 (Version 1)
Quarter: 2012Q4

REPORT INFORMATION
  Report Type: 
  Country: IE (occurrence: IE)
  Receive Date: 20121009
  Receipt Date: 20121009
  Transmission Date: 20130627
  Serious: Yes (Death, Other)
  Sender: FDA-Public Use
  Company Number: IE-PFIZER INC-2012248711

PATIENT
  Age: 50 Year
  Sex: Male

DRUGS (1)
  1. LYRICA [Suspect]
     Indication: ANXIETY
     Dosage: approx 400mg daily

REACTIONS (3)
  - Death [Fatal]
  - Drug abuse [Unknown]
  - Anger [Unknown]
